FAERS Safety Report 7333086-5 (Version None)
Quarter: 2011Q1

REPORT INFORMATION
  Report Type: 
  Country: None (occurrence: None)
  Receive Date: 20110304
  Receipt Date: 20110221
  Transmission Date: 20110831
  Serious: Yes (Other)
  Sender: FDA-Public Use
  Company Number: PHHY2011JP10731

PATIENT
  Age: 30 Year
  Sex: Female

DRUGS (2)
  1. CICLOSPORIN [Suspect]
     Indication: BONE MARROW TRANSPLANT
     Dosage: UNK
  2. CICLOSPORIN [Suspect]
     Indication: GRAFT VERSUS HOST DISEASE

REACTIONS (1)
  - CARDIOTOXICITY [None]
